FAERS Safety Report 4364199-8 (Version None)
Quarter: 2004Q2

REPORT INFORMATION
  Report Type: 
  Country: None (occurrence: None)
  Receive Date: 20040519
  Receipt Date: 20040504
  Transmission Date: 20050107
  Serious: Yes (Death)
  Sender: FDA-Public Use
  Company Number: 2004-DE-02567GD

PATIENT
  Age: 67 Year
  Sex: Female

DRUGS (12)
  1. PREDNISONE [Suspect]
     Indication: PERIPHERAL T-CELL LYMPHOMA UNSPECIFIED
     Dosage: SEE IMAGE
     Route: 048
  2. PREDNISONE [Suspect]
     Indication: SYSTEMIC LUPUS ERYTHEMATOSUS
     Dosage: SEE IMAGE
     Route: 048
  3. AZATHIOPRINE [Suspect]
     Indication: PANNICULITIS
     Dosage: 150 MG, PO
     Route: 048
  4. AZATHIOPRINE [Suspect]
     Indication: SYSTEMIC LUPUS ERYTHEMATOSUS
     Dosage: 150 MG, PO
     Route: 048
  5. CYCLOPHOSPHAMIDE [Suspect]
     Indication: PERIPHERAL T-CELL LYMPHOMA UNSPECIFIED
  6. THALIDOMIDE (THALIDOMIDE) [Suspect]
     Indication: PANNICULITIS
     Dosage: 100 MG, PO
     Route: 048
  7. THALIDOMIDE (THALIDOMIDE) [Suspect]
     Indication: SYSTEMIC LUPUS ERYTHEMATOSUS
     Dosage: 100 MG, PO
     Route: 048
  8. ADRIAMYCIN PFS [Suspect]
     Indication: T-CELL LYMPHOMA
  9. VINCRISTINE [Suspect]
     Indication: T-CELL LYMPHOMA
  10. ALENDRONATE (ALENDRONATE SODIUM) [Concomitant]
  11. BACITRACIN ZINC (BACITRACIN ZINC) [Concomitant]
  12. ALPRAZOLAM [Concomitant]

REACTIONS (3)
  - DRUG INEFFECTIVE [None]
  - PANNICULITIS LOBULAR [None]
  - WHITE BLOOD CELL COUNT DECREASED [None]
